FAERS Safety Report 7045123-6 (Version None)
Quarter: 2010Q4

REPORT INFORMATION
  Report Type: 
  Country: None (occurrence: None)
  Receive Date: 20101013
  Receipt Date: 20101013
  Transmission Date: 20110411
  Serious: Yes (Other)
  Sender: FDA-Public Use
  Company Number: None

PATIENT
  Sex: Male
  Weight: 78.8 kg

DRUGS (1)
  1. SUMATRIPTAN 50 MG [Suspect]
     Indication: MIGRAINE
     Dosage: 1 ONE TIME DOSE PO
     Route: 048
     Dates: start: 20100831, end: 20100831

REACTIONS (7)
  - ABNORMAL BEHAVIOUR [None]
  - AGGRESSION [None]
  - AMNESIA [None]
  - ANGER [None]
  - COMPLICATED MIGRAINE [None]
  - IMPAIRED WORK ABILITY [None]
  - LIMB INJURY [None]
